FAERS Safety Report 4569464-7 (Version None)
Quarter: 2005Q1

REPORT INFORMATION
  Report Type: 
  Country: None (occurrence: None)
  Receive Date: 20050201
  Receipt Date: 20050122
  Transmission Date: 20050727
  Serious: Yes (Other)
  Sender: FDA-Public Use
  Company Number: 2005017817

PATIENT
  Age: 40 Year
  Sex: Female
  Weight: 31.7518 kg

DRUGS (2)
  1. DEPO-PROVERA [Suspect]
     Indication: PELVIC PAIN
     Dosage: 150 MG (150 MG, 1ST INJECTION, EVERY MONTH), INTRAMUSCULAR
     Route: 030
     Dates: start: 19910801, end: 19910801
  2. DEPO-PROVERA [Suspect]
     Indication: PELVIC PAIN
     Dosage: 150 MG (150 MG, 1ST INJECTION, EVERY MONTH), INTRAMUSCULAR
     Route: 030
     Dates: start: 20021201, end: 20021201

REACTIONS (9)
  - ABDOMINAL DISTENSION [None]
  - ALOPECIA [None]
  - AMENORRHOEA [None]
  - HAIR GROWTH ABNORMAL [None]
  - HYPOTHALAMO-PITUITARY DISORDERS [None]
  - OEDEMA PERIPHERAL [None]
  - OSTEOPOROSIS [None]
  - THYROID DISORDER [None]
  - WEIGHT INCREASED [None]
